FAERS Safety Report 11568997 (Version 1)
Quarter: 2015Q3

REPORT INFORMATION
  Report Type: Report from Study
  Country: GU (occurrence: GU)
  Receive Date: 20150929
  Receipt Date: 20150929
  Transmission Date: 20151125
  Serious: Yes (Hospitalization)
  Sender: FDA-Public Use
  Company Number: GU-BAYER-2015-427539

PATIENT
  Age: 60 Year
  Sex: Male

DRUGS (1)
  1. STIVARGA [Suspect]
     Active Substance: REGORAFENIB
     Indication: COLON CANCER
     Dosage: 160 MG, QD
     Route: 048
     Dates: start: 20150820, end: 20150916

REACTIONS (6)
  - Dyspepsia [None]
  - Insomnia [None]
  - Vomiting [None]
  - Nausea [None]
  - Drug dose omission [None]
  - Paraesthesia [None]
